FAERS Safety Report 4519470-3 (Version None)
Quarter: 2004Q4

REPORT INFORMATION
  Report Type: 
  Country: None (occurrence: None)
  Receive Date: 20041101
  Receipt Date: 20040621
  Transmission Date: 20050328
  Serious: Yes (Hospitalization)
  Sender: FDA-Public Use
  Company Number: KDL081091

PATIENT
  Age: 53 Year
  Sex: Female
  Weight: 104.4 kg

DRUGS (6)
  1. PROCRIT [Suspect]
     Indication: RENAL FAILURE CHRONIC
     Dosage: 20000, 3 IN 1 WEEKS
     Dates: start: 20040501
  2. FUROSEMIDE [Concomitant]
  3. ISOPHANE INSULIN [Concomitant]
  4. AMLODIPINE BESYLATE [Concomitant]
  5. LOSARTAN POTASSIUM [Concomitant]
  6. CLONIDINE [Concomitant]

REACTIONS (1)
  - BLOOD PRESSURE INCREASED [None]
